FAERS Safety Report 4539399-4 (Version None)
Quarter: 2004Q4

REPORT INFORMATION
  Report Type: 
  Country: None (occurrence: None)
  Receive Date: 20041227
  Receipt Date: 20041227
  Transmission Date: 20050328
  Serious: Yes (Other)
  Sender: FDA-Public Use
  Company Number: None

PATIENT
  Sex: Female
  Weight: 54.4316 kg

DRUGS (2)
  1. CELEBREX [Suspect]
     Indication: ARTHRITIS
     Dosage: ONE CAP DAILY
     Dates: start: 20000601, end: 20000801
  2. CELEBREX [Suspect]
     Indication: ARTHRITIS
     Dosage: ONE CAP DAILY
     Dates: start: 20020101, end: 20020201

REACTIONS (2)
  - CHEST PAIN [None]
  - THERAPY RESPONDER [None]
